FAERS Safety Report 11191337 (Version 1)
Quarter: 2015Q2

REPORT INFORMATION
  Report Type: Report from Study
  Country: BR (occurrence: BR)
  Receive Date: 20150616
  Receipt Date: 20150616
  Transmission Date: 20150821
  Serious: Yes (Hospitalization, Other)
  Sender: FDA-Public Use
  Company Number: PHHY2015BR069245

PATIENT
  Sex: Male
  Weight: 70 kg

DRUGS (1)
  1. ONBREZ BREEZHALER [Suspect]
     Active Substance: INDACATEROL
     Indication: EMPHYSEMA
     Dosage: 2 DF, BID (1 IN THE MORNING AND 1 AT NIGHT)
     Route: 065

REACTIONS (2)
  - Erysipelas [Recovering/Resolving]
  - Inappropriate schedule of drug administration [Unknown]
